FAERS Safety Report 10176454 (Version 3)
Quarter: 2014Q2

REPORT INFORMATION
  Report Type: Spontaneous
  Country: FR (occurrence: None)
  Receive Date: 20140514
  Receipt Date: 20140602
  Transmission Date: 20141212
  Serious: Yes (Other)
  Sender: FDA-Public Use
  Company Number: 2014-FR-005827

PATIENT
  Age: 58 Year
  Sex: Male

DRUGS (8)
  1. XYREM [Suspect]
     Indication: NARCOLEPSY
     Route: 048
     Dates: start: 20131113
  2. CRESTOR (ROSUVASTATIN CALCIUM) [Concomitant]
  3. PLAVIX (CLOPIDOGREL BISULFATE) (CLOPIDOGREL BISULFATE) [Concomitant]
  4. TRIATEC (RAMIPRIL) [Concomitant]
  5. LANZOR (LANSOPRAZOLE) [Concomitant]
  6. EFFEXOR (VENLAFAXINE HYDROCHLORIDE) UNKNOWN [Concomitant]
  7. PROCORALAN (IVABRADINE HYDROCHLORIDE) TABLET [Concomitant]
  8. PROZAC (FLUOXETINE HYDROCHLORIDE) [Concomitant]

REACTIONS (6)
  - Coronary artery disease [None]
  - Angina pectoris [None]
  - Musculoskeletal pain [None]
  - Spinal pain [None]
  - Musculoskeletal stiffness [None]
  - Spinal pain [None]
